FAERS Safety Report 5330724-3 (Version None)
Quarter: 2007Q2

REPORT INFORMATION
  Report Type: 
  Country: None (occurrence: None)
  Receive Date: 20070522
  Receipt Date: 20070516
  Transmission Date: 20071010
  Serious: Yes (Death, Other)
  Sender: FDA-Public Use
  Company Number: PHEH2007US07490

PATIENT
  Sex: Male

DRUGS (3)
  1. LOPRESSOR [Suspect]
     Indication: HYPERTENSION
     Dosage: UNK, UNK
     Dates: start: 20070307, end: 20070424
  2. COUMADIN [Suspect]
     Indication: ANTICOAGULANT THERAPY
     Dosage: UNK, UNK
     Dates: start: 20070314, end: 20070424
  3. COMBIVENT [Suspect]
     Dosage: UNK, UNK

REACTIONS (5)
  - ANEURYSM [None]
  - ATRIAL FIBRILLATION [None]
  - CARDIOVERSION [None]
  - PULMONARY EMBOLISM [None]
  - SHOCK [None]
